FAERS Safety Report 8396729 (Version 3)
Quarter: 2013Q4

REPORT INFORMATION
  Report Type: Spontaneous
  Country: US (occurrence: US)
  Receive Date: 20120208
  Receipt Date: 20131018
  Transmission Date: 20140711
  Serious: Yes (Hospitalization, Other)
  Sender: FDA-Public Use
  Company Number: US-ASTRAZENECA-2012SE06165

PATIENT
  Age: 79 Year
  Sex: Male
  Weight: 93 kg

DRUGS (8)
  1. SYMBICORT [Suspect]
     Indication: CHRONIC OBSTRUCTIVE PULMONARY DISEASE
     Dosage: 160/ 4.5 MCGS ONE PUFF TWO TIMES A DAY
     Route: 055
     Dates: start: 2010
  2. SYMBICORT [Suspect]
     Indication: CHRONIC OBSTRUCTIVE PULMONARY DISEASE
     Dosage: 160 4.5 MCG TWO PUFFS BID
     Route: 055
     Dates: end: 20131009
  3. SPIRIVA [Concomitant]
  4. ALTACE [Concomitant]
     Indication: BLOOD PRESSURE ABNORMAL
  5. NAPROXEN [Concomitant]
     Route: 048
     Dates: start: 2003
  6. PRIVONTEL [Concomitant]
  7. ADVAIR [Concomitant]
  8. FLOMAX [Concomitant]
     Indication: PROSTATOMEGALY
     Dates: start: 2008

REACTIONS (9)
  - Haemoptysis [Unknown]
  - Pneumonia bacterial [Unknown]
  - Cataract [Unknown]
  - Condition aggravated [Unknown]
  - Pulmonary congestion [Unknown]
  - Prostatomegaly [Unknown]
  - Vision blurred [Unknown]
  - Visual impairment [Unknown]
  - Drug dose omission [Unknown]
